FAERS Safety Report 4381176-1 (Version None)
Quarter: 2004Q2

REPORT INFORMATION
  Report Type: 
  Country: None (occurrence: None)
  Receive Date: 20040617
  Receipt Date: 20040617
  Transmission Date: 20050107
  Serious: Yes (Hospitalization)
  Sender: FDA-Public Use
  Company Number: None

PATIENT
  Age: 62 Year
  Sex: Male

DRUGS (3)
  1. STALEVO 100 [Suspect]
     Indication: PARKINSON'S DISEASE
     Dosage: 12.5 -50-200 MG PO TID
     Route: 048
     Dates: start: 20040510, end: 20040513
  2. NEURONTIN [Concomitant]
  3. LEXAPRO [Concomitant]

REACTIONS (1)
  - TREMOR [None]
